FAERS Safety Report 18096272 (Version 1)
Quarter: 2020Q3

REPORT INFORMATION
  Report Type: Report from Study
  Country: US (occurrence: US)
  Receive Date: 20200731
  Receipt Date: 20200731
  Transmission Date: 20201103
  Serious: Yes (Death)
  Sender: FDA-Public Use
  Company Number: US-ASTRAZENECA-2020SE95542

PATIENT
  Sex: Female
  Weight: 48.5 kg

DRUGS (10)
  1. TAGRISSO [Suspect]
     Active Substance: OSIMERTINIB
     Indication: NEOPLASM MALIGNANT
     Route: 048
     Dates: start: 20200615
  2. BANOPHEN [Concomitant]
     Active Substance: DIPHENHYDRAMINE HYDROCHLORIDE
  3. ELIQUIS [Concomitant]
     Active Substance: APIXABAN
  4. MORPHINE SULFATE. [Concomitant]
     Active Substance: MORPHINE SULFATE
  5. GABAPENTIN. [Concomitant]
     Active Substance: GABAPENTIN
  6. FAMOTIDINE. [Concomitant]
     Active Substance: FAMOTIDINE
  7. LORATADINE. [Concomitant]
     Active Substance: LORATADINE
  8. DIGOXIN. [Concomitant]
     Active Substance: DIGOXIN
  9. DIPHENOXYLETE/ATROPINE [Concomitant]
  10. MONTELUKAST [Concomitant]
     Active Substance: MONTELUKAST SODIUM

REACTIONS (1)
  - Death [Fatal]
